FAERS Safety Report 23895876 (Version 1)
Quarter: 2024Q2

REPORT INFORMATION
  Report Type: Spontaneous
  Country: US (occurrence: None)
  Receive Date: 20240523
  Receipt Date: 20240523
  Transmission Date: 20240716
  Serious: No
  Sender: FDA-Public Use
  Company Number: None

PATIENT

DRUGS (1)
  1. LIDOCAINE [Suspect]
     Active Substance: LIDOCAINE

REACTIONS (6)
  - Encephalopathy [None]
  - Toxicity to various agents [None]
  - Neurotoxicity [None]
  - Anaesthetic complication neurological [None]
  - Contraindicated product administered [None]
  - Drug interaction [None]
